FAERS Safety Report 4377147-1 (Version None)
Quarter: 2004Q2

REPORT INFORMATION
  Report Type: 
  Country: None (occurrence: None)
  Receive Date: 20040614
  Receipt Date: 20040614
  Transmission Date: 20050107
  Serious: Yes (Other)
  Sender: FDA-Public Use
  Company Number: None

PATIENT
  Age: 57 Year
  Sex: Female
  Weight: 97.0698 kg

DRUGS (3)
  1. SPORANOX [Suspect]
     Indication: HISTOPLASMOSIS
     Dosage: 200 MG TWICE DAILY ORAL
     Route: 048
     Dates: start: 20040530, end: 20040606
  2. DUONEB [Concomitant]
  3. HYDROCORTISONE [Concomitant]

REACTIONS (2)
  - MALAISE [None]
  - PYREXIA [None]
